FAERS Safety Report 4409703-6 (Version None)
Quarter: 2004Q3

REPORT INFORMATION
  Report Type: 
  Country: None (occurrence: None)
  Receive Date: 20040727
  Receipt Date: 20040727
  Transmission Date: 20050211
  Serious: Yes (Life-Threatening)
  Sender: FDA-Public Use
  Company Number: None

PATIENT
  Age: 47 Year
  Sex: Male
  Weight: 83.9154 kg

DRUGS (2)
  1. SEROQUEL [Suspect]
     Indication: PSYCHOTIC DISORDER
     Dosage: 400 MG QD ORAL
     Route: 048
     Dates: start: 20040614, end: 20040717
  2. EFFEXOR [Concomitant]

REACTIONS (2)
  - COMPULSIONS [None]
  - SUICIDE ATTEMPT [None]
